FAERS Safety Report 4397047-0 (Version None)
Quarter: 2004Q3

REPORT INFORMATION
  Report Type: 
  Country: None (occurrence: None)
  Receive Date: 20040714
  Receipt Date: 20040706
  Transmission Date: 20050211
  Serious: Yes (Other)
  Sender: FDA-Public Use
  Company Number: PHBS2004US09106

PATIENT
  Age: 60 Year
  Sex: Female

DRUGS (2)
  1. CARBAMAZEPINE [Suspect]
     Indication: PARTIAL SEIZURES
     Dosage: 200 MG, BID
  2. HYDROCHLOROTHIAZIDE [Suspect]
     Indication: HYPERTENSION
     Dosage: 25 MG/DAY

REACTIONS (6)
  - BALANCE DISORDER [None]
  - DIZZINESS [None]
  - DRUG INTERACTION [None]
  - HYPONATRAEMIA [None]
  - LETHARGY [None]
  - SOMNOLENCE [None]
